FAERS Safety Report 5761820-4 (Version None)
Quarter: 2008Q2

REPORT INFORMATION
  Report Type: 
  Country: None (occurrence: None)
  Receive Date: 20080602
  Receipt Date: 20080523
  Transmission Date: 20081010
  Serious: Yes (Other)
  Sender: FDA-Public Use
  Company Number: 163-20785-08051507

PATIENT
  Age: 76 Year
  Sex: Female

DRUGS (2)
  1. THALOMID [Suspect]
     Indication: MULTIPLE MYELOMA
     Dosage: 150 MG, 3 IN 1 D, ORAL; 100 MG, 2 IN 1 D, ORAL
     Route: 048
     Dates: start: 20030828, end: 20040201
  2. THALOMID [Suspect]
     Indication: MULTIPLE MYELOMA
     Dosage: 150 MG, 3 IN 1 D, ORAL; 100 MG, 2 IN 1 D, ORAL
     Route: 048
     Dates: start: 20040225, end: 20040701

REACTIONS (2)
  - CONFUSIONAL STATE [None]
  - HALLUCINATION [None]
